FAERS Safety Report 24681789 (Version 1)
Quarter: 2024Q4

REPORT INFORMATION
  Report Type: Other
  Country: US (occurrence: US)
  Receive Date: 20241130
  Receipt Date: 20241130
  Transmission Date: 20250115
  Serious: No
  Sender: LUPIN
  Company Number: US-LUPIN PHARMACEUTICALS INC.-2024-04985

PATIENT

DRUGS (1)
  1. ALBUTEROL SULFATE [Suspect]
     Active Substance: ALBUTEROL SULFATE
     Indication: Product used for unknown indication
     Dosage: UNK UNK, QD (2 PUFFS A DAY)
     Dates: start: 20230724

REACTIONS (3)
  - Therapeutic product ineffective [Unknown]
  - Product packaging quantity issue [Unknown]
  - Product substitution issue [Unknown]
